FAERS Safety Report 18478225 (Version 1)
Quarter: 2020Q4

REPORT INFORMATION
  Report Type: Other
  Country: GB (occurrence: GB)
  Receive Date: 20201109
  Receipt Date: 20201109
  Transmission Date: 20210114
  Serious: Yes (Other)
  Sender: FDA-Public Use
  Company Number: GB-GLENMARK PHARMACEUTICALS-2020GMK050256

PATIENT

DRUGS (2)
  1. LINEZOLID. [Suspect]
     Active Substance: LINEZOLID
     Indication: OSTEOMYELITIS ACUTE
     Dosage: 1200 GRAM, OD
     Route: 048
     Dates: start: 20200825, end: 20200828
  2. TEICOPLANIN [Suspect]
     Active Substance: TEICOPLANIN
     Indication: OSTEOMYELITIS ACUTE
     Dosage: 1.2 GRAM (ON ALTERNATE DAYS)
     Route: 042
     Dates: start: 20200819, end: 20200828

REACTIONS (2)
  - Renal impairment [Recovered/Resolved with Sequelae]
  - Glomerular filtration rate decreased [Unknown]

NARRATIVE: CASE EVENT DATE: 20200819
